FAERS Safety Report 8066805-3 (Version None)
Quarter: 2012Q1

REPORT INFORMATION
  Report Type: 
  Country: None (occurrence: None)
  Receive Date: 20120124
  Receipt Date: 20120120
  Transmission Date: 20120608
  Serious: Yes (Hospitalization)
  Sender: FDA-Public Use
  Company Number: SE-ROCHE-1025371

PATIENT

DRUGS (2)
  1. XELODA [Suspect]
     Indication: COLORECTAL CANCER METASTATIC
     Dosage: INDUCTION PHASE
     Dates: start: 20111215
  2. AVASTIN [Suspect]
     Indication: COLORECTAL CANCER METASTATIC
     Dosage: INDUCTION PHASE ,   DATE OF LAST DOSE : 22/DEC/2011
     Dates: start: 20111215

REACTIONS (1)
  - LEFT VENTRICULAR DYSFUNCTION [None]
